FAERS Safety Report 8332750-9 (Version None)
Quarter: 2012Q2

REPORT INFORMATION
  Report Type: 
  Country: None (occurrence: None)
  Receive Date: 20120503
  Receipt Date: 20120420
  Transmission Date: 20120825
  Serious: Yes (Other)
  Sender: FDA-Public Use
  Company Number: BR-AMGEN-BRASP2012026265

PATIENT
  Age: 48 Year
  Sex: Male
  Weight: 104 kg

DRUGS (2)
  1. ENBREL [Suspect]
     Indication: RHEUMATOID ARTHRITIS
     Dosage: 50 MG, ONCE WEEKLY
     Route: 058
     Dates: start: 20120101
  2. PARATRAM [Concomitant]
     Indication: ARTHRALGIA
     Dosage: 20 MG, 1X/DAY

REACTIONS (1)
  - OBESITY SURGERY [None]
